FAERS Safety Report 4691036-4 (Version None)
Quarter: 2005Q2

REPORT INFORMATION
  Report Type: 
  Country: None (occurrence: None)
  Receive Date: 20050615
  Receipt Date: 20050523
  Transmission Date: 20051028
  Serious: Yes (Hospitalization)
  Sender: FDA-Public Use
  Company Number: 2005AP03013

PATIENT
  Age: 27087 Day
  Sex: Female
  Weight: 49.3 kg

DRUGS (10)
  1. IRESSA [Suspect]
     Indication: NON-SMALL CELL LUNG CANCER
     Route: 048
     Dates: start: 20050419, end: 20050523
  2. IRESSA [Suspect]
     Indication: LUNG ADENOCARCINOMA
     Route: 048
     Dates: start: 20050419, end: 20050523
  3. LOXONIN [Concomitant]
     Indication: PAIN
     Route: 048
     Dates: start: 20050408
  4. METEBANYL [Concomitant]
     Indication: COUGH
     Route: 048
     Dates: start: 20050422
  5. CLARITHROMYCIN [Concomitant]
     Indication: PNEUMONIA
     Route: 048
     Dates: end: 20050418
  6. OMEPRAL TABLETS [Concomitant]
     Indication: GASTROINTESTINAL DISORDER
     Route: 048
  7. MUCOSTA [Concomitant]
     Indication: GASTROINTESTINAL DISORDER
     Route: 048
  8. ASTOMIN [Concomitant]
     Indication: COUGH
     Route: 048
  9. RIZE [Concomitant]
     Indication: INSOMNIA
     Route: 048
  10. ISODINE GARGLE [Concomitant]
     Indication: NASOPHARYNGITIS

REACTIONS (4)
  - PLEURAL EFFUSION [None]
  - PNEUMONIA [None]
  - PYREXIA [None]
  - THERAPY NON-RESPONDER [None]
